FAERS Safety Report 23920149 (Version 1)
Quarter: 2024Q2

REPORT INFORMATION
  Report Type: Spontaneous
  Country: US (occurrence: None)
  Receive Date: 20240530
  Receipt Date: 20240530
  Transmission Date: 20240716
  Serious: No
  Sender: FDA-Public Use
  Company Number: None

PATIENT

DRUGS (1)
  1. LIDOCAINE [Suspect]
     Active Substance: LIDOCAINE

REACTIONS (7)
  - Encephalopathy [None]
  - Speech disorder [None]
  - Motor dysfunction [None]
  - Neurotoxicity [None]
  - Therapy cessation [None]
  - Refusal of treatment by relative [None]
  - Incorrect dose administered [None]
